FAERS Safety Report 13036570 (Version 2)
Quarter: 2017Q1

REPORT INFORMATION
  Report Type: Report from Study
  Country: US (occurrence: US)
  Receive Date: 20161216
  Receipt Date: 20170124
  Transmission Date: 20170428
  Serious: Yes (Hospitalization)
  Sender: FDA-Public Use
  Company Number: US-GILEAD-2016-0248489

PATIENT
  Age: 9 Year
  Sex: Male
  Weight: 24.3 kg

DRUGS (1)
  1. AMBRISENTAN [Suspect]
     Active Substance: AMBRISENTAN
     Indication: PRODUCT USED FOR UNKNOWN INDICATION
     Dosage: 5 MG, UNK
     Route: 065
     Dates: start: 20150810

REACTIONS (3)
  - Off label use [Not Recovered/Not Resolved]
  - Transplant evaluation [Recovered/Resolved]
  - Vocal cord paresis [Not Recovered/Not Resolved]

NARRATIVE: CASE EVENT DATE: 20150810
